FAERS Safety Report 21789972 (Version 2)
Quarter: 2023Q1

REPORT INFORMATION
  Report Type: Spontaneous
  Country: CN (occurrence: CN)
  Receive Date: 20221228
  Receipt Date: 20230106
  Transmission Date: 20230417
  Serious: Yes (Other)
  Sender: FDA-Public Use
  Company Number: CN-PFIZER INC-PV202200131537

PATIENT
  Age: 7 Decade
  Sex: Male

DRUGS (1)
  1. PAXLOVID [Suspect]
     Active Substance: NIRMATRELVIR\RITONAVIR
     Indication: COVID-19 treatment
     Dosage: UNK
     Route: 048
     Dates: end: 20221225

REACTIONS (4)
  - Thrombosis [Unknown]
  - Pneumonia [Unknown]
  - Bacterial infection [Unknown]
  - Malaise [Unknown]
